FAERS Safety Report 5664594-0 (Version None)
Quarter: 2008Q1

REPORT INFORMATION
  Report Type: 
  Country: None (occurrence: None)
  Receive Date: 20080314
  Receipt Date: 20080306
  Transmission Date: 20080703
  Serious: Yes (Hospitalization, Other)
  Sender: FDA-Public Use
  Company Number: US-JNJFOC-20080302148

PATIENT
  Age: 86 Year
  Sex: Female

DRUGS (1)
  1. RISPERDAL [Suspect]
     Indication: PSYCHOTIC DISORDER
     Route: 048

REACTIONS (4)
  - ABNORMAL BEHAVIOUR [None]
  - CARDIAC DISORDER [None]
  - CHOLELITHIASIS [None]
  - HEPATIC ENZYME INCREASED [None]
